FAERS Safety Report 9752120 (Version 1)
Quarter: 2013Q4

REPORT INFORMATION
  Report Type: Spontaneous
  Country: US (occurrence: None)
  Receive Date: 20131212
  Receipt Date: 20131212
  Transmission Date: 20140711
  Serious: Yes (Other)
  Sender: FDA-Public Use
  Company Number: None

PATIENT
  Age: 81 Year
  Sex: Male

DRUGS (4)
  1. ZYTIGA 250MG [Suspect]
     Route: 048
     Dates: start: 20130919
  2. XANAX [Concomitant]
  3. PREDNISONE [Concomitant]
  4. XGENA [Concomitant]

REACTIONS (3)
  - Blood urine present [None]
  - Pyrexia [None]
  - Back pain [None]
